FAERS Safety Report 19745617 (Version 1)
Quarter: 2021Q3

REPORT INFORMATION
  Report Type: Other
  Country: US (occurrence: US)
  Receive Date: 20210825
  Receipt Date: 20210825
  Transmission Date: 20211014
  Serious: Yes (Other)
  Sender: FDA-Public Use
  Company Number: US-ROCHE-2895954

PATIENT

DRUGS (3)
  1. DABRAFENIB [Suspect]
     Active Substance: DABRAFENIB
     Indication: NEOPLASM MALIGNANT
     Route: 065
  2. TRAMETINIB [Suspect]
     Active Substance: TRAMETINIB
     Indication: NEOPLASM MALIGNANT
     Route: 065
  3. VEMURAFENIB. [Suspect]
     Active Substance: VEMURAFENIB
     Indication: NEOPLASM MALIGNANT
     Route: 065

REACTIONS (23)
  - Hair texture abnormal [Unknown]
  - Blepharitis [Unknown]
  - Photosensitivity reaction [Unknown]
  - Paronychia [Unknown]
  - Mouth ulceration [Unknown]
  - Alopecia [Unknown]
  - Melanocytic naevus [Unknown]
  - Mucosal inflammation [Unknown]
  - Seborrhoeic keratosis [Unknown]
  - Panniculitis [Unknown]
  - Pruritus [Unknown]
  - Rash maculo-papular [Unknown]
  - Genital lesion [Unknown]
  - Palmoplantar keratoderma [Unknown]
  - Pyogenic granuloma [Unknown]
  - Xerosis [Unknown]
  - Dermatitis acneiform [Unknown]
  - Keratosis pilaris [Unknown]
  - Folliculitis [Unknown]
  - Oral neoplasm [Unknown]
  - Dermatitis [Unknown]
  - Seborrhoeic dermatitis [Unknown]
  - Nail disorder [Unknown]
